FAERS Safety Report 24935034 (Version 1)
Quarter: 2025Q1

REPORT INFORMATION
  Report Type: Spontaneous
  Country: IN (occurrence: IN)
  Receive Date: 20250206
  Receipt Date: 20250206
  Transmission Date: 20250409
  Serious: Yes (Death, Other)
  Sender: ROCHE
  Company Number: IN-ROCHE-10000190269

PATIENT
  Age: 34 Year
  Sex: Male

DRUGS (2)
  1. MYCOPHENOLATE MOFETIL [Suspect]
     Active Substance: MYCOPHENOLATE MOFETIL
     Indication: Prophylaxis against transplant rejection
     Route: 065
  2. TACROLIMUS [Suspect]
     Active Substance: TACROLIMUS
     Indication: Prophylaxis against transplant rejection
     Route: 065

REACTIONS (7)
  - Sepsis [Unknown]
  - Dengue fever [Unknown]
  - Pancreatitis acute [Unknown]
  - Jaundice cholestatic [Unknown]
  - Disseminated intravascular coagulation [Unknown]
  - Graft versus host disease [Fatal]
  - Acute respiratory distress syndrome [Unknown]
